FAERS Safety Report 8499138 (Version 2)
Quarter: 2013Q2

REPORT INFORMATION
  Report Type: Spontaneous
  Country: CA (occurrence: CA)
  Receive Date: 20120409
  Receipt Date: 20130405
  Transmission Date: 20140414
  Serious: No
  Sender: FDA-Public Use
  Company Number: PHHY2012CA028009

PATIENT
  Age: 63 Year
  Sex: Male

DRUGS (3)
  1. TASIGNA [Suspect]
     Indication: CHRONIC MYELOID LEUKAEMIA
     Dosage: 400 MG, QID
     Route: 048
  2. TASIGNA [Suspect]
     Dosage: 400 MG BID
     Route: 048
  3. TASIGNA [Suspect]
     Dosage: 400 MG TID
     Route: 048
     Dates: start: 201107, end: 201208

REACTIONS (5)
  - Insomnia [Unknown]
  - Dysphonia [Unknown]
  - Pain in extremity [Recovering/Resolving]
  - Rash [Unknown]
  - Back pain [Unknown]
